FAERS Safety Report 5833142-4 (Version None)
Quarter: 2008Q3

REPORT INFORMATION
  Report Type: 
  Country: None (occurrence: None)
  Receive Date: 20080731
  Receipt Date: 20080718
  Transmission Date: 20090109
  Serious: Yes (Death)
  Sender: FDA-Public Use
  Company Number: 2008AL004677

PATIENT
  Age: 90 Year
  Sex: Female
  Weight: 48.0813 kg

DRUGS (1)
  1. DIGOXIN [Suspect]
     Dosage: PO
     Route: 048

REACTIONS (6)
  - ABASIA [None]
  - ANOREXIA [None]
  - CARDIAC DISORDER [None]
  - FATIGUE [None]
  - HYPERSOMNIA [None]
  - PNEUMONIA [None]
